FAERS Safety Report 19754782 (Version 1)
Quarter: 2021Q3

REPORT INFORMATION
  Report Type: Spontaneous
  Country: US (occurrence: US)
  Receive Date: 20210825
  Receipt Date: 20210825
  Transmission Date: 20211014
  Serious: Yes (Death)
  Sender: FDA-Public Use
  Company Number: None

PATIENT
  Age: 45 Year
  Sex: Male

DRUGS (3)
  1. EVEROLIMUS. [Suspect]
     Active Substance: EVEROLIMUS
     Dosage: ?  DOSE OR AMOUNT: 2MG, FREQUENCY: QAM?DOSE OR AMOUNT: 1.5MG,   OTHER FREQUENCY:QPM;?
     Route: 048
     Dates: start: 20210203
  2. NUZYRA [Suspect]
     Active Substance: OMADACYCLINE
     Route: 048
     Dates: start: 20200312
  3. TACROLIMUS. [Concomitant]
     Active Substance: TACROLIMUS

REACTIONS (3)
  - Dyspnoea [None]
  - Resuscitation [None]
  - Fall [None]

NARRATIVE: CASE EVENT DATE: 20210823
